FAERS Safety Report 7218919-5 (Version None)
Quarter: 2011Q1

REPORT INFORMATION
  Report Type: 
  Country: None (occurrence: None)
  Receive Date: 20110110
  Receipt Date: 20101229
  Transmission Date: 20110831
  Serious: Yes (Life-Threatening, Hospitalization, Other)
  Sender: FDA-Public Use
  Company Number: CA-BAYER-2010-008624

PATIENT
  Age: 72 Year
  Sex: Female

DRUGS (7)
  1. FOSAVANCE [Concomitant]
  2. HYDROMORPHONE HCL [Concomitant]
  3. PREDNISONE [Concomitant]
  4. LORAZEPAM [Concomitant]
  5. SALBUTAMOL [Concomitant]
  6. AVELOX [Suspect]
     Indication: PRODUCT USED FOR UNKNOWN INDICATION
  7. ADVAIR [Concomitant]
     Route: 055

REACTIONS (2)
  - FACE OEDEMA [None]
  - RESPIRATORY DISTRESS [None]
